FAERS Safety Report 4504284-0 (Version None)
Quarter: 2004Q4

REPORT INFORMATION
  Report Type: 
  Country: None (occurrence: None)
  Receive Date: 20041115
  Receipt Date: 20041115
  Transmission Date: 20050328
  Serious: Yes (Hospitalization)
  Sender: FDA-Public Use
  Company Number: None

PATIENT
  Age: 17 Year
  Sex: Male
  Weight: 63.5036 kg

DRUGS (1)
  1. PROZAC [Suspect]
     Dosage: DAILY
     Dates: start: 20030301

REACTIONS (3)
  - AGGRESSION [None]
  - AGITATION [None]
  - IRRITABILITY [None]
